FAERS Safety Report 17363663 (Version 3)
Quarter: 2020Q1

REPORT INFORMATION
  Report Type: Spontaneous
  Country: AT (occurrence: AT)
  Receive Date: 20200203
  Receipt Date: 20200306
  Transmission Date: 20200409
  Serious: Yes (Life-Threatening, Hospitalization, Disabling)
  Sender: FDA-Public Use
  Company Number: AT-ELI_LILLY_AND_COMPANY-AT202001011173

PATIENT
  Sex: Female
  Weight: 64 kg

DRUGS (3)
  1. TALTZ [Suspect]
     Active Substance: IXEKIZUMAB
     Indication: PSORIASIS
     Dosage: 1 DOSAGE FORM, MONTHLY (1/M)
     Route: 058
     Dates: start: 201810, end: 20191216
  2. RIVACOR PLUS [Concomitant]
     Indication: HYPERTENSION
     Dosage: 1 DOSAGE FORM, DAILY
     Route: 065
  3. ZANIPRIL [Concomitant]
     Active Substance: ENALAPRIL MALEATE\LERCANIDIPINE HYDROCHLORIDE
     Indication: HYPERTENSION
     Dosage: 0.5 DOSAGE FORM, DAILY
     Route: 065

REACTIONS (4)
  - Enterocolitis [Recovered/Resolved with Sequelae]
  - Intestinal haemorrhage [Recovered/Resolved with Sequelae]
  - Colitis [Recovered/Resolved with Sequelae]
  - Gastric ulcer [Recovered/Resolved with Sequelae]

NARRATIVE: CASE EVENT DATE: 20191126
